FAERS Safety Report 25698173 (Version 1)
Quarter: 2025Q3

REPORT INFORMATION
  Report Type: Spontaneous
  Country: US (occurrence: US)
  Receive Date: 20250819
  Receipt Date: 20250819
  Transmission Date: 20251020
  Serious: Yes (Death, Hospitalization, Other)
  Sender: AMGEN
  Company Number: US-AMGEN-USASP2025161753

PATIENT
  Age: 48 Year
  Sex: Female

DRUGS (7)
  1. LUMAKRAS [Suspect]
     Active Substance: SOTORASIB
     Indication: Acute myeloid leukaemia
     Dosage: 960 MILLIGRAM, QD
     Route: 048
  2. LUMAKRAS [Suspect]
     Active Substance: SOTORASIB
     Indication: K-ras gene mutation
  3. FILGRASTIM [Suspect]
     Active Substance: FILGRASTIM
     Indication: Acute myeloid leukaemia
     Route: 065
  4. HYDROXYUREA [Concomitant]
     Active Substance: HYDROXYUREA
  5. Cytarabine;Idarubicin [Concomitant]
     Indication: Acute myeloid leukaemia
  6. FLUDARABINE [Concomitant]
     Active Substance: FLUDARABINE PHOSPHATE
     Indication: Acute myeloid leukaemia
  7. Azacitidine;Venetoclax [Concomitant]

REACTIONS (13)
  - Death [Fatal]
  - Cerebral mass effect [Unknown]
  - Vasogenic cerebral oedema [Unknown]
  - Central nervous system lesion [Unknown]
  - Hydrocephalus [Unknown]
  - Asthenia [Unknown]
  - Nausea [Unknown]
  - Proctitis [Unknown]
  - Hypophagia [Unknown]
  - Acute myeloid leukaemia [Unknown]
  - White blood cell count increased [Unknown]
  - Drug effective for unapproved indication [Unknown]
  - Off label use [Unknown]
